FAERS Safety Report 6572745-9 (Version None)
Quarter: 2010Q1

REPORT INFORMATION
  Report Type: 
  Country: None (occurrence: None)
  Receive Date: 20100205
  Receipt Date: 20100128
  Transmission Date: 20100710
  Serious: Yes (Hospitalization)
  Sender: FDA-Public Use
  Company Number: PHHO2009JP14338

PATIENT
  Sex: Female
  Weight: 60 kg

DRUGS (17)
  1. EXELON [Suspect]
     Indication: DEMENTIA ALZHEIMER'S TYPE
     Dosage: 2.5CM2
     Route: 062
     Dates: start: 20090227, end: 20090326
  2. EXELON [Suspect]
     Dosage: 5CM2
     Route: 062
     Dates: start: 20090327, end: 20090423
  3. EXELON [Suspect]
     Dosage: 7.5CM2
     Route: 062
     Dates: start: 20090424, end: 20090521
  4. EXELON [Suspect]
     Dosage: 10CM2
     Route: 062
     Dates: start: 20090522, end: 20091113
  5. APONOL [Suspect]
     Indication: LACUNAR INFARCTION
  6. SERMION [Suspect]
     Indication: LACUNAR INFARCTION
  7. GRAMALIL [Suspect]
     Indication: DEMENTIA ALZHEIMER'S TYPE
  8. LIPODOWN ASAHIKASEI [Suspect]
     Indication: HYPERLIPIDAEMIA
  9. YOKUKAN-SAN [Suspect]
     Indication: DEMENTIA ALZHEIMER'S TYPE
  10. VESICARE [Suspect]
     Indication: MICTURITION URGENCY
  11. DEPAS [Suspect]
     Indication: DEPRESSION
  12. CEREKINON [Suspect]
     Indication: ENTEROCOLITIS
  13. APOLAKETE [Suspect]
     Indication: POLLAKIURIA
  14. MECOBALAMIN [Concomitant]
     Indication: NEUROPATHY PERIPHERAL
  15. ALINAMIN F [Concomitant]
     Indication: NEUROPATHY PERIPHERAL
  16. ASPARA-CA [Concomitant]
     Indication: OSTEOPOROSIS
  17. MIYA-BM [Concomitant]
     Indication: ENTEROCOLITIS

REACTIONS (10)
  - BREAST CANCER [None]
  - BREAST ENLARGEMENT [None]
  - BREAST OEDEMA [None]
  - EPIDERMAL GROWTH FACTOR RECEPTOR INCREASED [None]
  - ERYTHEMA [None]
  - METASTASES TO LYMPH NODES [None]
  - OESTROGEN RECEPTOR ASSAY POSITIVE [None]
  - PROGESTERONE RECEPTOR ASSAY POSITIVE [None]
  - RETRACTED NIPPLE [None]
  - SURGERY [None]
